FAERS Safety Report 20183131 (Version 1)
Quarter: 2021Q4

REPORT INFORMATION
  Report Type: Spontaneous
  Country: JP (occurrence: JP)
  Receive Date: 20211214
  Receipt Date: 20211214
  Transmission Date: 20220304
  Serious: Yes (Other)
  Sender: FDA-Public Use
  Company Number: JP-MALLINCKRODT-T202105419

PATIENT
  Age: 40 Year
  Sex: Female

DRUGS (11)
  1. NITRIC OXIDE [Suspect]
     Active Substance: NITRIC OXIDE
     Indication: Pulmonary arterial pressure increased
     Dosage: UNK (INHALATION)
     Route: 055
  2. HEPARIN [Suspect]
     Active Substance: HEPARIN SODIUM
     Indication: Anticoagulant therapy
     Dosage: 3000 U, DAILY
     Route: 042
  3. BUPIVACAINE [Concomitant]
     Active Substance: BUPIVACAINE
     Indication: Anaesthesia
     Dosage: 12 MILLIGRAM
     Route: 037
  4. MORPHINE [Concomitant]
     Active Substance: MORPHINE
     Indication: Anaesthesia
     Dosage: 0.1 MILLIGRAM
     Route: 037
  5. FENTANYL [Concomitant]
     Active Substance: FENTANYL
     Indication: Anaesthesia
     Dosage: 10 PICOGRAM
     Route: 037
  6. EPINEPHRINE [Concomitant]
     Active Substance: EPINEPHRINE
     Indication: Product used for unknown indication
     Dosage: 1 MILLIGRAM
     Route: 065
  7. DOBUTAMINE [Concomitant]
     Active Substance: DOBUTAMINE HYDROCHLORIDE
     Indication: Haemodynamic instability
     Dosage: 2.5 MICROGRAM/KILOGRAM/MIN
     Route: 065
  8. DOBUTAMINE [Concomitant]
     Active Substance: DOBUTAMINE HYDROCHLORIDE
     Dosage: 4.2 MICROGRAM/KILOGRAM/MIN
     Route: 065
  9. DOBUTAMINE [Concomitant]
     Active Substance: DOBUTAMINE HYDROCHLORIDE
     Dosage: 1 MICROGRAM/KILOGRAM/MIN
     Route: 065
  10. NOREPINEPHRINE [Concomitant]
     Active Substance: NOREPINEPHRINE
     Indication: Haemodynamic instability
     Dosage: 0.17 JIG/KG/MIN
     Route: 065
  11. MILRINONE [Concomitant]
     Active Substance: MILRINONE
     Indication: Pulmonary arterial pressure increased
     Dosage: UNK
     Route: 065

REACTIONS (2)
  - Retroperitoneal haemorrhage [Recovered/Resolved]
  - Product use issue [Recovered/Resolved]
